FAERS Safety Report 6111935-6 (Version None)
Quarter: 2009Q1

REPORT INFORMATION
  Report Type: 
  Country: None (occurrence: None)
  Receive Date: 20090311
  Receipt Date: 20090305
  Transmission Date: 20090719
  Serious: Yes (Hospitalization, Other)
  Sender: FDA-Public Use
  Company Number: US-ROXANE LABORATORIES, INC.-2009-RO-00211RO

PATIENT
  Age: 12 Month
  Sex: Male
  Weight: 10 kg

DRUGS (6)
  1. MIDAZOLAM HCL [Suspect]
     Indication: ENDOTRACHEAL INTUBATION
     Route: 042
  2. MORPHINE [Suspect]
     Indication: ENDOTRACHEAL INTUBATION
     Route: 042
  3. LORAZEPAM [Suspect]
     Indication: GRAND MAL CONVULSION
  4. ZOFRAN [Suspect]
     Route: 048
  5. SUCCINYLCHOLINE [Suspect]
     Indication: ENDOTRACHEAL INTUBATION
     Route: 042
  6. ACTIVATED CHARCOAL [Suspect]
     Indication: DRUG TOXICITY

REACTIONS (5)
  - ELECTROCARDIOGRAM QT PROLONGED [None]
  - GRAND MAL CONVULSION [None]
  - HEPATOTOXICITY [None]
  - RASH ERYTHEMATOUS [None]
  - SEROTONIN SYNDROME [None]
